FAERS Safety Report 9332896 (Version 1)
Quarter: 2013Q2

REPORT INFORMATION
  Report Type: Spontaneous
  Country: IT (occurrence: IT)
  Receive Date: 20130606
  Receipt Date: 20130606
  Transmission Date: 20140414
  Serious: Yes (Hospitalization)
  Sender: FDA-Public Use
  Company Number: IT-MYLANLABS-2013S1011469

PATIENT
  Age: 33 Year
  Sex: Female

DRUGS (3)
  1. ALPRAZOLAM [Suspect]
     Indication: PRODUCT USED FOR UNKNOWN INDICATION
     Route: 048
     Dates: start: 20130514, end: 20130514
  2. STILNOX [Suspect]
     Indication: PRODUCT USED FOR UNKNOWN INDICATION
     Route: 048
     Dates: start: 20130514, end: 20130514
  3. ESTAZOLAM [Suspect]
     Indication: PRODUCT USED FOR UNKNOWN INDICATION
     Route: 048
     Dates: start: 20130514, end: 20130514

REACTIONS (4)
  - Suicide attempt [Unknown]
  - Poverty of speech [Unknown]
  - Sopor [Unknown]
  - Overdose [Unknown]
